FAERS Safety Report 17066049 (Version 1)
Quarter: 2019Q4

REPORT INFORMATION
  Report Type: Spontaneous
  Country: SE (occurrence: SE)
  Receive Date: 20191122
  Receipt Date: 20191122
  Transmission Date: 20200122
  Serious: Yes (Life-Threatening, Hospitalization, Disabling)
  Sender: FDA-Public Use
  Company Number: SE-MYLANLABS-2019M1112419

PATIENT
  Age: 40 Year
  Sex: Female
  Weight: 60 kg

DRUGS (4)
  1. LEDERSPAN [Suspect]
     Active Substance: TRIAMCINOLONE HEXACETONIDE
     Indication: HAEMORRHAGE
     Dosage: UNK
     Dates: start: 201406, end: 20150907
  2. LEDERSPAN [Suspect]
     Active Substance: TRIAMCINOLONE HEXACETONIDE
     Indication: PERIPHERAL SWELLING
     Dosage: UNK
  3. MARCAIN /00330102/ [Suspect]
     Active Substance: BUPIVACAINE HYDROCHLORIDE
     Indication: PERIPHERAL SWELLING
     Dosage: UNK
     Dates: start: 201406, end: 20150907
  4. MARCAIN                            /00330102/ [Suspect]
     Active Substance: BUPIVACAINE HYDROCHLORIDE
     Indication: HAEMORRHAGE
     Dosage: UNK

REACTIONS (12)
  - Pulse abnormal [Unknown]
  - Dizziness [Unknown]
  - Abdominal pain [Unknown]
  - Facial paralysis [Unknown]
  - Muscle twitching [Unknown]
  - Depressed level of consciousness [Unknown]
  - Muscular weakness [Unknown]
  - Respiration abnormal [Unknown]
  - Acidosis [Unknown]
  - Blood pressure decreased [Unknown]
  - Vomiting [Unknown]
  - Arrhythmia [Unknown]

NARRATIVE: CASE EVENT DATE: 20140606
